FAERS Safety Report 17181029 (Version 1)
Quarter: 2019Q4

REPORT INFORMATION
  Report Type: Spontaneous
  Country: US (occurrence: US)
  Receive Date: 20191220
  Receipt Date: 20191220
  Transmission Date: 20200122
  Serious: Yes (Other)
  Sender: FDA-Public Use
  Company Number: US-UNITED THERAPEUTICS-UNT-2019-020616

PATIENT
  Age: 46 Year
  Sex: Female

DRUGS (1)
  1. REMODULIN [Suspect]
     Active Substance: TREPROSTINIL
     Indication: PULMONARY ARTERIAL HYPERTENSION
     Dosage: 0.031 ?G/KG, CONTINUING
     Route: 041
     Dates: start: 201804

REACTIONS (5)
  - Vascular device occlusion [Unknown]
  - Injection site haemorrhage [Unknown]
  - Device physical property issue [Unknown]
  - Injection site erythema [Unknown]
  - Injection site scab [Unknown]

NARRATIVE: CASE EVENT DATE: 201811
